FAERS Safety Report 7865148-8 (Version None)
Quarter: 2011Q4

REPORT INFORMATION
  Report Type: 
  Country: None (occurrence: None)
  Receive Date: 20111028
  Receipt Date: 20101021
  Transmission Date: 20120403
  Serious: No
  Sender: FDA-Public Use
  Company Number: US-GLAXOSMITHKLINE-A0888049A

PATIENT
  Age: 69 Year
  Sex: Female

DRUGS (6)
  1. ATENOLOL [Concomitant]
  2. AMITRIPTYLINE HCL [Concomitant]
  3. XOPENEX [Concomitant]
  4. ADVAIR DISKUS 100/50 [Suspect]
     Indication: BRONCHITIS CHRONIC
     Dosage: 1PUFF TWICE PER DAY
     Route: 055
     Dates: start: 20080101
  5. HYDROXYZINE [Concomitant]
  6. NEXIUM [Concomitant]

REACTIONS (2)
  - DYSPHONIA [None]
  - WEIGHT INCREASED [None]
